FAERS Safety Report 10797667 (Version 1)
Quarter: 2015Q1

REPORT INFORMATION
  Report Type: Spontaneous
  Country: US (occurrence: US)
  Receive Date: 20150216
  Receipt Date: 20150216
  Transmission Date: 20150721
  Serious: No
  Sender: FDA-Public Use
  Company Number: US-PFIZER INC-2015048627

PATIENT
  Sex: Female

DRUGS (2)
  1. NORVASC [Suspect]
     Active Substance: AMLODIPINE BESYLATE
     Indication: HYPERTENSION
     Dosage: 2.5 MG, DAILY
     Dates: start: 20150128
  2. TOPROL XL [Interacting]
     Active Substance: METOPROLOL SUCCINATE
     Dosage: 50 MG, UNK

REACTIONS (2)
  - Drug interaction [Unknown]
  - Palpitations [Unknown]
